FAERS Safety Report 6868308-8 (Version None)
Quarter: 2010Q3

REPORT INFORMATION
  Report Type: 
  Country: None (occurrence: None)
  Receive Date: 20100722
  Receipt Date: 20080630
  Transmission Date: 20110219
  Serious: Yes (Other)
  Sender: FDA-Public Use
  Company Number: US-PFIZER INC-2008039819

PATIENT
  Sex: Male
  Weight: 115.7 kg

DRUGS (3)
  1. CHANTIX [Suspect]
     Indication: SMOKING CESSATION THERAPY
     Route: 048
     Dates: start: 20080410, end: 20080417
  2. METHADONE HCL [Concomitant]
     Indication: PAIN
  3. PERCOCET [Concomitant]
     Indication: PAIN
     Dosage: 7.5/325 THREE TIMES DAILY AS NEEDED

REACTIONS (12)
  - ABDOMINAL PAIN UPPER [None]
  - AGITATION [None]
  - ANGER [None]
  - ANXIETY [None]
  - COGNITIVE DISORDER [None]
  - DEPRESSION [None]
  - DRUG WITHDRAWAL SYNDROME [None]
  - FEELING ABNORMAL [None]
  - IRRITABILITY [None]
  - MEMORY IMPAIRMENT [None]
  - MOOD ALTERED [None]
  - PARANOIA [None]
